FAERS Safety Report 5097932-0 (Version None)
Quarter: 2006Q3

REPORT INFORMATION
  Report Type: 
  Country: None (occurrence: None)
  Receive Date: 20060905
  Receipt Date: 20060816
  Transmission Date: 20061208
  Serious: Yes (Hospitalization)
  Sender: FDA-Public Use
  Company Number: DSA_28625_2006

PATIENT
  Age: 61 Year
  Sex: Female

DRUGS (13)
  1. ENALAPRIL MALEATE [Suspect]
     Indication: HYPERTENSION
     Dosage: 20 MG QD PO
     Route: 048
     Dates: start: 19950101
  2. ENALAPRIL MALEATE [Suspect]
     Indication: HYPERTENSION
     Dosage: 20 MG QD PO
     Route: 048
     Dates: start: 20051001, end: 20050101
  3. AMLODIPINE BESYLATE [Concomitant]
  4. CALCITRIOL [Concomitant]
  5. CARVEDILOL [Concomitant]
  6. DOXAZOSIN MESYLATE [Concomitant]
  7. DOXAZOSIN MESYLATE [Concomitant]
  8. DOXAZOSIN MESYLATE [Concomitant]
  9. NIFEDIPINE [Concomitant]
  10. NIFEDIPINE [Concomitant]
  11. NITROGLYCERIN [Concomitant]
  12. OMEPRAZOLE [Concomitant]
  13. SEVELAMER HYDROCHLORIDE [Concomitant]

REACTIONS (8)
  - BLOOD CREATININE INCREASED [None]
  - BLOOD PRESSURE INCREASED [None]
  - DIALYSIS [None]
  - DRUG LEVEL DECREASED [None]
  - HEADACHE [None]
  - INFECTION [None]
  - NAUSEA [None]
  - RENAL IMPAIRMENT [None]
